FAERS Safety Report 7296139-6 (Version None)
Quarter: 2011Q1

REPORT INFORMATION
  Report Type: 
  Country: None (occurrence: None)
  Receive Date: 20110211
  Receipt Date: 20110211
  Transmission Date: 20110831
  Serious: Yes (Other)
  Sender: FDA-Public Use
  Company Number: None

PATIENT
  Sex: Female
  Weight: 92.262 kg

DRUGS (4)
  1. HYDROXYZINE [Suspect]
     Indication: SOCIAL PHOBIA
     Dosage: 1 Q6HOURS PRN
     Dates: start: 20090929
  2. HYDROXYZINE [Suspect]
     Indication: OBSESSIVE-COMPULSIVE DISORDER
     Dosage: 1 Q6HOURS PRN
     Dates: start: 20090929
  3. TOPAMAX [Concomitant]
  4. LAMICTAL [Concomitant]

REACTIONS (2)
  - HEADACHE [None]
  - PRODUCT SUBSTITUTION ISSUE [None]
